FAERS Safety Report 7931539-X (Version None)
Quarter: 2011Q4

REPORT INFORMATION
  Report Type: 
  Country: None (occurrence: None)
  Receive Date: 20111121
  Receipt Date: 20111121
  Transmission Date: 20120403
  Serious: Yes (Hospitalization, Other)
  Sender: FDA-Public Use
  Company Number: None

PATIENT
  Age: 54 Year
  Sex: Male
  Weight: 74.9 kg

DRUGS (1)
  1. DABIGATRAN [Suspect]

REACTIONS (5)
  - LOWER GASTROINTESTINAL HAEMORRHAGE [None]
  - DIARRHOEA HAEMORRHAGIC [None]
  - INTESTINAL ULCER [None]
  - RECTAL HAEMORRHAGE [None]
  - ANAEMIA [None]
